FAERS Safety Report 10656994 (Version 1)
Quarter: 2014Q4

REPORT INFORMATION
  Report Type: Report from Study
  Country: US (occurrence: US)
  Receive Date: 20141217
  Receipt Date: 20141217
  Transmission Date: 20150529
  Serious: Yes (Hospitalization, Other)
  Sender: FDA-Public Use
  Company Number: US-ROCHE-1506322

PATIENT
  Age: 58 Year
  Sex: Male

DRUGS (2)
  1. BEVACIZUMAB [Suspect]
     Active Substance: BEVACIZUMAB
     Indication: PRIMITIVE NEUROECTODERMAL TUMOUR
     Dosage: OVER 30-90 MINUTES
     Route: 042
     Dates: start: 20140910
  2. AMG 386 [Suspect]
     Active Substance: TREBANANIB
     Indication: PRIMITIVE NEUROECTODERMAL TUMOUR
     Dosage: OVER 30-60 MIN
     Route: 042
     Dates: start: 20140910

REACTIONS (3)
  - Chronic kidney disease [Not Recovered/Not Resolved]
  - Dyspnoea [Not Recovered/Not Resolved]
  - Pleural effusion [Not Recovered/Not Resolved]

NARRATIVE: CASE EVENT DATE: 20140922
